FAERS Safety Report 9518821 (Version 1)
Quarter: 2013Q3

REPORT INFORMATION
  Report Type: Spontaneous
  Country: CA (occurrence: CA)
  Receive Date: 20130912
  Receipt Date: 20130912
  Transmission Date: 20140515
  Serious: Yes (Hospitalization)
  Sender: FDA-Public Use
  Company Number: CA-ROCHE-1272128

PATIENT
  Age: 62 Year
  Sex: Male

DRUGS (10)
  1. CEFTRIAXONE [Suspect]
     Indication: PRODUCT USED FOR UNKNOWN INDICATION
     Dosage: POWDER FOR SOLUTION INTRAMUSCULAR
     Route: 042
  2. CALCIUM GLUCONATE [Suspect]
     Indication: PRODUCT USED FOR UNKNOWN INDICATION
     Dosage: FREQUENCY + THERAPY DURATION: ONCE, LIQUID INTRAVENOUS
     Route: 042
  3. FENTANYL [Concomitant]
     Route: 042
  4. HEPARIN SODIUM [Concomitant]
     Route: 058
  5. HUMULIN R [Concomitant]
     Dosage: LIQUID INTRAMUSCULAR
     Route: 065
  6. MAXERAN [Concomitant]
     Route: 042
  7. PHENYTOIN [Concomitant]
     Route: 042
  8. POTASSIUM CHLORIDE [Concomitant]
     Route: 065
  9. PROPOFOL [Concomitant]
     Dosage: EMULSION
     Route: 042
  10. ZANTAC [Concomitant]
     Route: 042

REACTIONS (2)
  - Blood creatinine increased [Recovered/Resolved]
  - Renal failure acute [Recovered/Resolved]
